FAERS Safety Report 12944745 (Version 1)
Quarter: 2016Q4

REPORT INFORMATION
  Report Type: Spontaneous
  Country: US (occurrence: US)
  Receive Date: 20161116
  Receipt Date: 20161116
  Transmission Date: 20170207
  Serious: No
  Sender: FDA-Public Use
  Company Number: US-JNJFOC-20160931099

PATIENT
  Sex: Male
  Weight: 81.65 kg

DRUGS (2)
  1. MENS ROGAINE EXTRA STRENGTH [Suspect]
     Active Substance: MINOXIDIL
     Indication: ALOPECIA
     Dosage: LESS THAN 1/2 CAP
     Route: 061
     Dates: start: 201608, end: 2016
  2. MENS ROGAINE EXTRA STRENGTH [Suspect]
     Active Substance: MINOXIDIL
     Route: 061

REACTIONS (5)
  - Inappropriate schedule of drug administration [Recovering/Resolving]
  - Underdose [Recovering/Resolving]
  - Rash [Recovering/Resolving]
  - Eczema [Recovering/Resolving]
  - Drug administered at inappropriate site [Recovering/Resolving]
